FAERS Safety Report 19742359 (Version 2)
Quarter: 2021Q3

REPORT INFORMATION
  Report Type: Spontaneous
  Country: PL (occurrence: PL)
  Receive Date: 20210824
  Receipt Date: 20210909
  Transmission Date: 20211014
  Serious: Yes (Hospitalization, Other)
  Sender: FDA-Public Use
  Company Number: PL-MYLANLABS-2021M1054303

PATIENT
  Age: 68 Year
  Sex: Female

DRUGS (11)
  1. VITAMIN B12 [Suspect]
     Active Substance: CYANOCOBALAMIN
     Indication: PREMEDICATION
     Dosage: UNK
     Dates: start: 20180828
  2. PEMETREXED. [Suspect]
     Active Substance: PEMETREXED
     Indication: LUNG ADENOCARCINOMA STAGE IV
     Dosage: UNK, CYCLE, 3 CYCLES
     Route: 042
     Dates: start: 20180828, end: 20181016
  3. DEXAMETHASONE. [Suspect]
     Active Substance: DEXAMETHASONE
     Indication: PREMEDICATION
     Dosage: UNK
     Dates: start: 20180828
  4. CISPLATIN. [Suspect]
     Active Substance: CISPLATIN
     Indication: LUNG ADENOCARCINOMA
     Dosage: UNK, CYCLE,  3 CYCLES
     Route: 065
     Dates: start: 20180828, end: 20181113
  5. CISPLATIN. [Suspect]
     Active Substance: CISPLATIN
     Indication: CHEMOTHERAPY
  6. NINTEDANIB [Suspect]
     Active Substance: NINTEDANIB
     Indication: PRODUCT USED FOR UNKNOWN INDICATION
     Dosage: UNK
     Dates: start: 20181221, end: 20191017
  7. PEMETREXED. [Suspect]
     Active Substance: PEMETREXED
     Indication: CHEMOTHERAPY
  8. PEMETREXED. [Suspect]
     Active Substance: PEMETREXED
     Indication: LUNG ADENOCARCINOMA
     Dosage: UNK, CYCLE, 3 CYCLES
     Route: 042
     Dates: start: 20180828, end: 20181113
  9. CISPLATIN. [Suspect]
     Active Substance: CISPLATIN
     Indication: LUNG ADENOCARCINOMA STAGE IV
     Dosage: UNK, CYCLE, 3 CYCLES
     Route: 065
     Dates: start: 20180828, end: 20181016
  10. FOLIC ACID. [Suspect]
     Active Substance: FOLIC ACID
     Indication: PREMEDICATION
     Dosage: UNK
  11. DOCETAXEL. [Suspect]
     Active Substance: DOCETAXEL
     Indication: LUNG ADENOCARCINOMA STAGE IV
     Dosage: UNK
     Route: 065

REACTIONS (8)
  - Paraesthesia [Unknown]
  - Lung adenocarcinoma [Unknown]
  - Neutropenia [Unknown]
  - Disease progression [Unknown]
  - Transaminases increased [Unknown]
  - Drug ineffective [Unknown]
  - Blood creatinine increased [Unknown]
  - Malignant neoplasm progression [Unknown]

NARRATIVE: CASE EVENT DATE: 20181016
